FAERS Safety Report 4972380-X (Version None)
Quarter: 2006Q2

REPORT INFORMATION
  Report Type: 
  Country: None (occurrence: None)
  Receive Date: 20060413
  Receipt Date: 20050831
  Transmission Date: 20061013
  Serious: Yes (Hospitalization, Disabling)
  Sender: FDA-Public Use
  Company Number: US-MERCK-0509USA00082

PATIENT
  Age: 61 Year
  Sex: Female
  Weight: 84 kg

DRUGS (3)
  1. VIOXX [Suspect]
     Indication: ARTHRALGIA
     Route: 048
     Dates: start: 20000425, end: 20000627
  2. VIOXX [Suspect]
     Route: 048
     Dates: start: 20000627, end: 20040920
  3. TYLENOL (CAPLET) [Concomitant]
     Indication: PAIN
     Route: 065

REACTIONS (8)
  - BRONCHITIS CHRONIC [None]
  - CORONARY ARTERY DISEASE [None]
  - DEPRESSION [None]
  - FIBROMYALGIA [None]
  - HEART RATE DECREASED [None]
  - HEART RATE IRREGULAR [None]
  - MYOCARDIAL INFARCTION [None]
  - SPINAL DISORDER [None]
